FAERS Safety Report 13622103 (Version 1)
Quarter: 2017Q2

REPORT INFORMATION
  Report Type: Spontaneous
  Country: US (occurrence: US)
  Receive Date: 20170607
  Receipt Date: 20170607
  Transmission Date: 20170830
  Serious: No
  Sender: FDA-Public Use
  Company Number: US-ROCHE-1038590

PATIENT
  Sex: Male

DRUGS (1)
  1. FUZEON [Suspect]
     Active Substance: ENFUVIRTIDE
     Indication: PRODUCT USED FOR UNKNOWN INDICATION
     Route: 058

REACTIONS (6)
  - Drug administration error [Unknown]
  - Unevaluable event [Unknown]
  - Poor quality drug administered [Unknown]
  - Skin swelling [Unknown]
  - Product quality issue [Unknown]
  - Injection site reaction [Unknown]
